FAERS Safety Report 10362332 (Version 2)
Quarter: 2014Q4

REPORT INFORMATION
  Report Type: Spontaneous
  Country: CO (occurrence: CO)
  Receive Date: 20140805
  Receipt Date: 20141003
  Transmission Date: 20150528
  Serious: Yes (Death)
  Sender: FDA-Public Use
  Company Number: CO-NOVOPROD-417742

PATIENT
  Age: 3 Month
  Sex: Male

DRUGS (2)
  1. NOVOSEVEN RT [Suspect]
     Active Substance: COAGULATION FACTOR VIIA RECOMBINANT HUMAN
     Indication: HAEMOPHILIA A WITH ANTI FACTOR VIII
     Dosage: 18 MG, QD
     Route: 065
     Dates: start: 20140616, end: 20140718
  2. NOVOSEVEN RT [Suspect]
     Active Substance: COAGULATION FACTOR VIIA RECOMBINANT HUMAN
     Indication: CENTRAL NERVOUS SYSTEM HAEMORRHAGE
     Dosage: 18 MG, QD
     Route: 065
     Dates: start: 20140616, end: 20140718

REACTIONS (4)
  - Cardio-respiratory arrest [Fatal]
  - Brain death [Fatal]
  - Neurogenic shock [Fatal]
  - Multi-organ failure [Fatal]
